FAERS Safety Report 5713041-9 (Version None)
Quarter: 2008Q2

REPORT INFORMATION
  Report Type: 
  Country: None (occurrence: None)
  Receive Date: 20080422
  Receipt Date: 20080417
  Transmission Date: 20081010
  Serious: Yes (Hospitalization)
  Sender: FDA-Public Use
  Company Number: CH-ASTRAZENECA-2008PK00819

PATIENT
  Age: 65 Year
  Sex: Male

DRUGS (2)
  1. NEXIUM [Suspect]
     Route: 048
     Dates: start: 20080401
  2. PLAVIX [Suspect]
     Route: 048
     Dates: start: 20080401, end: 20080401

REACTIONS (2)
  - ANGIOEDEMA [None]
  - TYPE I HYPERSENSITIVITY [None]
